FAERS Safety Report 4393653-8 (Version None)
Quarter: 2004Q3

REPORT INFORMATION
  Report Type: 
  Country: None (occurrence: None)
  Receive Date: 20040709
  Receipt Date: 20040701
  Transmission Date: 20050211
  Serious: Yes (Hospitalization)
  Sender: FDA-Public Use
  Company Number: US-MERCK-0407USA00166

PATIENT
  Age: 47 Year
  Sex: Female

DRUGS (5)
  1. QVAR 40 [Concomitant]
     Route: 065
  2. FORADIL [Concomitant]
     Route: 065
  3. SINGULAIR [Suspect]
     Indication: ASTHMA
     Route: 048
     Dates: start: 20040506, end: 20040611
  4. SINGULAIR [Suspect]
     Indication: HYPERSENSITIVITY
     Route: 048
     Dates: start: 20040506, end: 20040611
  5. PREDNISONE [Concomitant]
     Route: 065

REACTIONS (3)
  - CANDIDIASIS [None]
  - COLITIS ULCERATIVE [None]
  - GASTROENTERITIS [None]
